APPROVED DRUG PRODUCT: HYDROFLUMETHIAZIDE AND RESERPINE
Active Ingredient: HYDROFLUMETHIAZIDE; RESERPINE
Strength: 50MG;0.125MG
Dosage Form/Route: TABLET;ORAL
Application: A088110 | Product #001
Applicant: WATSON LABORATORIES INC
Approved: Mar 22, 1983 | RLD: No | RS: No | Type: DISCN